FAERS Safety Report 20302329 (Version 3)
Quarter: 2022Q3

REPORT INFORMATION
  Report Type: Report from Study
  Country: US (occurrence: US)
  Receive Date: 20220106
  Receipt Date: 20220818
  Transmission Date: 20221027
  Serious: No
  Sender: FDA-Public Use
  Company Number: US-ABBVIE-22K-163-4221301-00

PATIENT
  Sex: Female

DRUGS (4)
  1. RINVOQ [Suspect]
     Active Substance: UPADACITINIB
     Indication: Rheumatoid arthritis
     Route: 048
  2. MODERNA COVID-19 VACCINE [Concomitant]
     Active Substance: ELASOMERAN
     Indication: COVID-19 immunisation
     Dosage: 1 DOSE
     Route: 030
     Dates: start: 20210121, end: 20210121
  3. MODERNA COVID-19 VACCINE [Concomitant]
     Active Substance: ELASOMERAN
     Dosage: 2 DOSE
     Route: 030
     Dates: start: 20210218, end: 20210218
  4. MODERNA COVID-19 VACCINE [Concomitant]
     Active Substance: ELASOMERAN
     Dosage: 3 DOSE
     Route: 030
     Dates: start: 20211029, end: 20211029

REACTIONS (6)
  - Memory impairment [Unknown]
  - Blepharitis [Unknown]
  - Fungal infection [Unknown]
  - Visual impairment [Unknown]
  - Wound infection [Unknown]
  - Dolichocolon [Unknown]
